FAERS Safety Report 12430997 (Version 1)
Quarter: 2016Q2

REPORT INFORMATION
  Report Type: Report from Study
  Country: US (occurrence: US)
  Receive Date: 20160603
  Receipt Date: 20160603
  Transmission Date: 20160815
  Serious: No
  Sender: FDA-Public Use
  Company Number: PHEH2016US013564

PATIENT
  Age: 72 Year
  Sex: Female

DRUGS (1)
  1. AFINITOR [Suspect]
     Active Substance: EVEROLIMUS
     Indication: HEPATIC CANCER
     Dosage: 10 MG, QD
     Route: 048

REACTIONS (6)
  - Product use issue [Unknown]
  - Decreased appetite [Unknown]
  - Fall [Unknown]
  - Dizziness [Unknown]
  - Ageusia [Unknown]
  - Hypertension [Unknown]

NARRATIVE: CASE EVENT DATE: 20160521
